FAERS Safety Report 19750158 (Version 3)
Quarter: 2021Q4

REPORT INFORMATION
  Report Type: Spontaneous
  Country: US (occurrence: US)
  Receive Date: 20210826
  Receipt Date: 20211016
  Transmission Date: 20220303
  Serious: No
  Sender: FDA-Public Use
  Company Number: NVSC2021US188199

PATIENT
  Sex: Female

DRUGS (3)
  1. VIVELLE-DOT [Suspect]
     Active Substance: ESTRADIOL
     Indication: Product used for unknown indication
     Dosage: 0.1 %
     Route: 065
  2. VIVELLE-DOT [Suspect]
     Active Substance: ESTRADIOL
     Dosage: 1 MG
     Route: 065
  3. VIVELLE-DOT [Suspect]
     Active Substance: ESTRADIOL
     Dosage: 0.1 MG
     Route: 065

REACTIONS (8)
  - Hot flush [Unknown]
  - Palpitations [Unknown]
  - Product adhesion issue [Unknown]
  - Hair disorder [Unknown]
  - Breast tenderness [Unknown]
  - Breast pain [Unknown]
  - Pain [Unknown]
  - Product dose omission issue [Unknown]
